FAERS Safety Report 6229625-8 (Version None)
Quarter: 2009Q2

REPORT INFORMATION
  Report Type: 
  Country: None (occurrence: None)
  Receive Date: 20090615
  Receipt Date: 20090608
  Transmission Date: 20091009
  Serious: Yes (Death, Hospitalization)
  Sender: FDA-Public Use
  Company Number: A0790977A

PATIENT
  Age: 44 Year
  Sex: Male

DRUGS (1)
  1. AVANDIA [Suspect]
     Route: 048
     Dates: start: 20000501, end: 20070319

REACTIONS (2)
  - CARDIAC ARREST [None]
  - DEATH [None]
